FAERS Safety Report 20186584 (Version 1)
Quarter: 2021Q4

REPORT INFORMATION
  Report Type: Spontaneous
  Country: IL (occurrence: IL)
  Receive Date: 20211215
  Receipt Date: 20211215
  Transmission Date: 20220303
  Serious: Yes (Death, Hospitalization)
  Sender: FDA-Public Use
  Company Number: IL-STRIDES ARCOLAB LIMITED-2021SP031013

PATIENT
  Age: 85 Year
  Sex: Female

DRUGS (3)
  1. PREDNISOLONE [Suspect]
     Active Substance: PREDNISOLONE
     Indication: Pemphigoid
     Dosage: UNK
     Route: 065
  2. RITUXIMAB [Suspect]
     Active Substance: RITUXIMAB
     Indication: Pemphigoid
     Dosage: 1 GRAM, UNK, INFUSION ON DAY1 AND DAY 15
     Route: 065
  3. METHYLPREDNISOLONE [Suspect]
     Active Substance: METHYLPREDNISOLONE
     Indication: Pemphigoid
     Dosage: UNK, PULSE
     Route: 065

REACTIONS (2)
  - Sepsis [Fatal]
  - Drug ineffective [Unknown]
